FAERS Safety Report 18585625 (Version 1)
Quarter: 2020Q4

REPORT INFORMATION
  Report Type: Spontaneous
  Country: US (occurrence: US)
  Receive Date: 20201205
  Receipt Date: 20201205
  Transmission Date: 20210114
  Serious: Yes (Hospitalization, Other)
  Sender: FDA-Public Use
  Company Number: None

PATIENT
  Age: 62 Year
  Sex: Female
  Weight: 83.25 kg

DRUGS (18)
  1. NEBULIZER ALBUTEROL [Concomitant]
     Active Substance: ALBUTEROL
  2. MONTELUKAST [Concomitant]
     Active Substance: MONTELUKAST SODIUM
  3. VITAMIN CODE RAW D3 [Concomitant]
  4. MYKIND ORGANICX WOMEN^S MULT =I [Concomitant]
  5. OMEPRAZOLE. [Concomitant]
     Active Substance: OMEPRAZOLE
  6. PRO AIR ER [Concomitant]
  7. NOW PROPOLIS [Concomitant]
  8. NEW CHAPTER ELDERBERRY FORCE [Concomitant]
  9. HOST DEFENSE MY COMMUNITY COMPREHENSIVE IMMUNE SUPPORT MUSHROOMS [Concomitant]
  10. AIMOVIG [Suspect]
     Active Substance: ERENUMAB-AOOE
     Indication: MIGRAINE
     Dosage: ?          QUANTITY:1 INJECTION(S);OTHER FREQUENCY:1/MONTH;?
     Route: 030
     Dates: start: 20201005, end: 20201205
  11. MEDTRONIC LOOP RECORDER [Concomitant]
  12. CPAP MACIHINE [Concomitant]
  13. LISINOPRIL. [Concomitant]
     Active Substance: LISINOPRIL
  14. ESCITALOPRAM [Concomitant]
     Active Substance: ESCITALOPRAM OXALATE
  15. LEVOTHYROXINE. [Concomitant]
     Active Substance: LEVOTHYROXINE
  16. VITAMIN CODE RAW VITAMIN C [Concomitant]
  17. BIO SCHWARTZ PREMIUM ULTRA PURE TURMURIC CUCU, IM W/ BIOPERINE [Concomitant]
  18. VITAMIN CODE RAW B 12 [Concomitant]

REACTIONS (7)
  - Injection site rash [None]
  - Constipation [None]
  - Injection site swelling [None]
  - Injection site warmth [None]
  - Drug hypersensitivity [None]
  - Injection site pruritus [None]
  - Pruritus [None]

NARRATIVE: CASE EVENT DATE: 20201113
